FAERS Safety Report 6721432-2 (Version None)
Quarter: 2010Q2

REPORT INFORMATION
  Report Type: 
  Country: None (occurrence: None)
  Receive Date: 20100512
  Receipt Date: 20100507
  Transmission Date: 20101027
  Serious: Yes (Other)
  Sender: FDA-Public Use
  Company Number: CH-BRISTOL-MYERS SQUIBB COMPANY-15094717

PATIENT
  Sex: Male

DRUGS (1)
  1. VIDEX [Suspect]
     Route: 064

REACTIONS (2)
  - ENAMEL ANOMALY [None]
  - MATERNAL DRUGS AFFECTING FOETUS [None]
